FAERS Safety Report 4309109-4 (Version None)
Quarter: 2004Q1

REPORT INFORMATION
  Report Type: 
  Country: None (occurrence: None)
  Receive Date: 20040301
  Receipt Date: 20040213
  Transmission Date: 20041129
  Serious: Yes (Hospitalization)
  Sender: FDA-Public Use
  Company Number: 2004-113060-NL

PATIENT
  Age: 82 Year
  Sex: Female

DRUGS (2)
  1. ORGARAN [Suspect]
     Indication: HEPARIN-INDUCED THROMBOCYTOPENIA
     Dosage: 1500 IU/2000 IU/ SUBCUTANEOUS
     Route: 058
     Dates: start: 20031118
  2. HEPARIN-FRACTION, SODIUM SALT [Concomitant]

REACTIONS (3)
  - BRONCHOPNEUMONIA [None]
  - DEEP VEIN THROMBOSIS [None]
  - MELAENA [None]
